FAERS Safety Report 6638240-3 (Version None)
Quarter: 2010Q1

REPORT INFORMATION
  Report Type: 
  Country: None (occurrence: None)
  Receive Date: 20100317
  Receipt Date: 20100305
  Transmission Date: 20100710
  Serious: Yes (Other)
  Sender: FDA-Public Use
  Company Number: B0639694A

PATIENT
  Age: 70 Year
  Sex: Female

DRUGS (1)
  1. NEOTIGASON [Suspect]
     Dosage: 25MG PER DAY
     Route: 048

REACTIONS (6)
  - DISEASE PROGRESSION [None]
  - DRUG INEFFECTIVE [None]
  - DYSSTASIA [None]
  - GAIT DISTURBANCE [None]
  - MUSCLE SPASMS [None]
  - RECTAL HAEMORRHAGE [None]
